FAERS Safety Report 5753950-8 (Version None)
Quarter: 2008Q2

REPORT INFORMATION
  Report Type: 
  Country: None (occurrence: None)
  Receive Date: 20080527
  Receipt Date: 20080514
  Transmission Date: 20081010
  Serious: No
  Sender: FDA-Public Use
  Company Number: 2008-173699-NL

PATIENT
  Age: 21 Year
  Sex: Female

DRUGS (1)
  1. ETONORGESTREL [Suspect]
     Indication: CONTRACEPTION
     Dosage: DF
     Route: 059
     Dates: start: 20070101

REACTIONS (5)
  - CUSHING'S SYNDROME [None]
  - DEPRESSION [None]
  - IATROGENIC INJURY [None]
  - SKIN STRIAE [None]
  - VOGT-KOYANAGI-HARADA SYNDROME [None]
